FAERS Safety Report 4684098-1 (Version None)
Quarter: 2005Q2

REPORT INFORMATION
  Report Type: 
  Country: None (occurrence: None)
  Receive Date: 20050527
  Receipt Date: 20041101
  Transmission Date: 20051028
  Serious: Yes (Hospitalization, Other)
  Sender: FDA-Public Use
  Company Number: 15072

PATIENT
  Age: 68 Year
  Sex: Female

DRUGS (1)
  1. LEUCOVORIN CALCIUM [Suspect]
     Indication: COLORECTAL CANCER METASTATIC

REACTIONS (4)
  - DIARRHOEA [None]
  - HYPOTENSION [None]
  - NAUSEA [None]
  - VOMITING [None]
